FAERS Safety Report 6259273-5 (Version None)
Quarter: 2009Q3

REPORT INFORMATION
  Report Type: 
  Country: None (occurrence: None)
  Receive Date: 20090702
  Receipt Date: 20090617
  Transmission Date: 20100115
  Serious: Yes (Other)
  Sender: FDA-Public Use
  Company Number: 2009S1005085

PATIENT
  Age: 56 Year
  Sex: Male
  Weight: 105.2345 kg

DRUGS (5)
  1. PHOSPHOSODA FLAVOR NOT SPECIFIED [Suspect]
     Indication: COLONOSCOPY
     Dosage: 90 ML; TOTAL; PO
     Route: 048
     Dates: start: 20070328, end: 20070329
  2. HYDROCHLOROTHIAZIDE [Concomitant]
  3. DIOVAN  /01319601/ [Concomitant]
  4. LISINOPRIL [Concomitant]
  5. PREVACID [Concomitant]

REACTIONS (2)
  - HYPOTENSION [None]
  - RENAL FAILURE [None]
